FAERS Safety Report 16704956 (Version 1)
Quarter: 2019Q3

REPORT INFORMATION
  Report Type: Other
  Country: FR (occurrence: FR)
  Receive Date: 20190814
  Receipt Date: 20190814
  Transmission Date: 20191004
  Serious: Yes (Hospitalization)
  Sender: FDA-Public Use
  Company Number: FR-CELLTRION INC.-2019FR023720

PATIENT

DRUGS (5)
  1. CORTANCYL [Concomitant]
     Active Substance: PREDNISONE
     Indication: VASCULITIS
     Dosage: 45 MG, QD
     Route: 048
     Dates: start: 20190508
  2. BACTRIM [Concomitant]
     Active Substance: SULFAMETHOXAZOLE\TRIMETHOPRIM
     Indication: INFECTION PROPHYLAXIS
     Dosage: 3 DF/WEEK
     Route: 048
     Dates: start: 20190508, end: 20190703
  3. RITUXIMAB (UNKNOWN) [Suspect]
     Active Substance: RITUXIMAB
     Indication: VASCULITIS
     Dosage: 375 MG/M2 PER WEEK
     Route: 042
     Dates: start: 20190508, end: 20190531
  4. FOLINORAL [Concomitant]
     Active Substance: LEUCOVORIN CALCIUM
     Indication: PROPHYLAXIS
     Dosage: 1 {DF}, 1 WEEK
     Route: 048
     Dates: start: 20190508, end: 20190703
  5. LANSOPRAZOLE. [Concomitant]
     Active Substance: LANSOPRAZOLE
     Indication: PROPHYLAXIS AGAINST GASTROINTESTINAL ULCER
     Dosage: 15 MG, QD
     Route: 048
     Dates: start: 20190508, end: 20190703

REACTIONS (1)
  - Agranulocytosis [Recovered/Resolved]

NARRATIVE: CASE EVENT DATE: 20190703
